FAERS Safety Report 21134927 (Version 1)
Quarter: 2022Q3

REPORT INFORMATION
  Report Type: Spontaneous
  Country: US (occurrence: US)
  Receive Date: 20220727
  Receipt Date: 20220727
  Transmission Date: 20221027
  Serious: Yes (Other)
  Sender: FDA-Public Use
  Company Number: US-CELLTRION INC.-2022US011812

PATIENT

DRUGS (2)
  1. TRUXIMA [Suspect]
     Active Substance: RITUXIMAB-ABBS
     Indication: Immune thrombocytopenia
     Dosage: UNK
  2. TRUXIMA [Suspect]
     Active Substance: RITUXIMAB-ABBS
     Dosage: 700 DAY 1, DAY 8, DAY 15, DAY 22 (THERAPY PLANNED IS 07/20, 07/27, 08/03, 08/10 700 Q28DAYS)
     Dates: start: 20220720

REACTIONS (2)
  - Immune thrombocytopenia [Unknown]
  - Off label use [Unknown]
